FAERS Safety Report 7014990-4 (Version None)
Quarter: 2010Q3

REPORT INFORMATION
  Report Type: 
  Country: None (occurrence: None)
  Receive Date: 20100927
  Receipt Date: 20091117
  Transmission Date: 20110219
  Serious: No
  Sender: FDA-Public Use
  Company Number: US-ASTRAZENECA-2009SE27513

PATIENT
  Age: 48 Year
  Sex: Female
  Weight: 49.9 kg

DRUGS (2)
  1. ARIMIDEX [Suspect]
     Indication: BREAST CANCER
     Route: 048
     Dates: start: 20090817
  2. FOSAMAX [Concomitant]

REACTIONS (4)
  - ARTHRITIS [None]
  - BONE DISORDER [None]
  - HOT FLUSH [None]
  - MYALGIA [None]
